FAERS Safety Report 8412019-4 (Version None)
Quarter: 2012Q2

REPORT INFORMATION
  Report Type: 
  Country: None (occurrence: None)
  Receive Date: 20120605
  Receipt Date: 20120605
  Transmission Date: 20120825
  Serious: Yes (Death)
  Sender: FDA-Public Use
  Company Number: US-PFIZER INC-2008003406

PATIENT
  Age: 52 Year
  Sex: Female

DRUGS (3)
  1. VERAPAMIL HCL [Suspect]
     Dosage: UNK
     Route: 048
  2. HYDROCODONE BITARTRATE + ACETAMINOPHEN [Suspect]
     Dosage: UNK
  3. AMITRIPTYLINE HCL [Suspect]
     Dosage: UNK

REACTIONS (3)
  - COMPLETED SUICIDE [None]
  - RESPIRATORY ARREST [None]
  - CARDIAC ARREST [None]
